FAERS Safety Report 18490331 (Version 1)
Quarter: 2020Q4

REPORT INFORMATION
  Report Type: Spontaneous
  Country: JP (occurrence: JP)
  Receive Date: 20201111
  Receipt Date: 20201111
  Transmission Date: 20210114
  Serious: Yes (Other)
  Sender: FDA-Public Use
  Company Number: JP-PFIZER INC-2020428595

PATIENT
  Sex: Female

DRUGS (2)
  1. LOXONIN [Concomitant]
     Active Substance: LOXOPROFEN SODIUM
     Dosage: UNK
  2. LYRICA [Suspect]
     Active Substance: PREGABALIN
     Dosage: UNK
     Route: 048

REACTIONS (6)
  - Renal impairment [Unknown]
  - Diabetic nephropathy [Unknown]
  - Constipation [Unknown]
  - Type 2 diabetes mellitus [Unknown]
  - Weight increased [Recovering/Resolving]
  - Obesity [Unknown]
